FAERS Safety Report 5164471-8 (Version None)
Quarter: 2006Q4

REPORT INFORMATION
  Report Type: 
  Country: None (occurrence: None)
  Receive Date: 20061205
  Receipt Date: 20061124
  Transmission Date: 20070319
  Serious: Yes (Hospitalization)
  Sender: FDA-Public Use
  Company Number: FR-ROCHE-472933

PATIENT
  Sex: Female

DRUGS (2)
  1. XELODA [Suspect]
     Indication: BREAST CANCER
     Route: 065
  2. NAVELBINE [Concomitant]
     Indication: BREAST CANCER
     Route: 048

REACTIONS (2)
  - ACUTE PULMONARY OEDEMA [None]
  - EJECTION FRACTION DECREASED [None]
